FAERS Safety Report 8398453 (Version 2)
Quarter: 2015Q2

REPORT INFORMATION
  Report Type: Spontaneous
  Country: US (occurrence: US)
  Receive Date: 20120209
  Receipt Date: 20150424
  Transmission Date: 20150821
  Serious: Yes (Hospitalization, Other)
  Sender: FDA-Public Use
  Company Number: US-ROCHE-793946

PATIENT
  Sex: Male
  Weight: 76.27 kg

DRUGS (1)
  1. ACCUTANE [Suspect]
     Active Substance: ISOTRETINOIN
     Indication: ACNE
     Route: 065
     Dates: start: 1982, end: 1983

REACTIONS (6)
  - Irritable bowel syndrome [Unknown]
  - Depression [Unknown]
  - Mental disorder [Unknown]
  - Diverticulitis [Unknown]
  - Suicidal ideation [Unknown]
  - Inflammatory bowel disease [Unknown]

NARRATIVE: CASE EVENT DATE: 1993
